FAERS Safety Report 9297707 (Version 1)
Quarter: 2013Q2

REPORT INFORMATION
  Report Type: Spontaneous
  Country: IT (occurrence: IT)
  Receive Date: 20130520
  Receipt Date: 20130520
  Transmission Date: 20140414
  Serious: Yes (Hospitalization)
  Sender: FDA-Public Use
  Company Number: PHHY2013IT049273

PATIENT
  Age: 73 Year
  Sex: Female

DRUGS (5)
  1. TASIGNA [Suspect]
     Indication: CHRONIC MYELOID LEUKAEMIA
     Dosage: 800 MG, DAILY
     Route: 048
     Dates: start: 20071101, end: 20130128
  2. PARIET [Concomitant]
     Dosage: 1 DF
     Route: 048
  3. DELORAZEPAM [Concomitant]
  4. CONGESCOR [Concomitant]
     Dosage: 2 DF, UNK
     Route: 048
  5. METHIONINE [Concomitant]
     Route: 048

REACTIONS (1)
  - Myocardial ischaemia [Recovered/Resolved with Sequelae]
